FAERS Safety Report 10474818 (Version 4)
Quarter: 2015Q2

REPORT INFORMATION
  Report Type: Report from Study
  Country: CA (occurrence: CA)
  Receive Date: 20140925
  Receipt Date: 20150410
  Transmission Date: 20150821
  Serious: Yes (Hospitalization, Other)
  Sender: FDA-Public Use
  Company Number: CA-ROCHE-1463403

PATIENT
  Age: 67 Year
  Sex: Male

DRUGS (26)
  1. METHOTREXATE [Suspect]
     Active Substance: METHOTREXATE
     Indication: PRODUCT USED FOR UNKNOWN INDICATION
     Dosage: ON MONDAYS
     Route: 058
     Dates: end: 20140922
  2. BISOPROLOL [Concomitant]
     Active Substance: BISOPROLOL
  3. RITUXAN [Suspect]
     Active Substance: RITUXIMAB
     Indication: VASCULITIS
     Dosage: FREQUENCY: DAY 1, 15.
     Route: 042
     Dates: start: 20140908
  4. ACETAMINOPHEN. [Concomitant]
     Active Substance: ACETAMINOPHEN
     Indication: PREMEDICATION
     Route: 048
     Dates: start: 20140908
  5. RITUXAN [Suspect]
     Active Substance: RITUXIMAB
     Route: 042
     Dates: start: 20140320
  6. SPIRIVA [Concomitant]
     Active Substance: TIOTROPIUM BROMIDE MONOHYDRATE
  7. PREDNISONE. [Concomitant]
     Active Substance: PREDNISONE
     Route: 065
  8. RITUXAN [Suspect]
     Active Substance: RITUXIMAB
     Indication: RHEUMATOID ARTHRITIS
     Route: 042
     Dates: start: 20140227
  9. RITUXAN [Suspect]
     Active Substance: RITUXIMAB
     Route: 042
     Dates: start: 2014
  10. ASA [Concomitant]
     Active Substance: ASPIRIN
  11. POTASSIUM CHLORIDE. [Concomitant]
     Active Substance: POTASSIUM CHLORIDE
     Route: 065
  12. CEPHALEX [Concomitant]
  13. ADVAIR HFA [Concomitant]
     Active Substance: FLUTICASONE PROPIONATE\SALMETEROL XINAFOATE
  14. TAMSULOSIN [Concomitant]
     Active Substance: TAMSULOSIN
  15. FOLIC ACID. [Concomitant]
     Active Substance: FOLIC ACID
     Route: 065
  16. GABAPENTIN. [Concomitant]
     Active Substance: GABAPENTIN
  17. FOSAMAX [Concomitant]
     Active Substance: ALENDRONATE SODIUM
  18. COLACE [Concomitant]
     Active Substance: DOCUSATE SODIUM
  19. AVODART [Concomitant]
     Active Substance: DUTASTERIDE
  20. METHYLPREDNISOLONE. [Concomitant]
     Active Substance: METHYLPREDNISOLONE
     Indication: PREMEDICATION
     Route: 042
     Dates: start: 20140908
  21. DIPHENHYDRAMINE HCL [Concomitant]
     Active Substance: DIPHENHYDRAMINE HYDROCHLORIDE
     Indication: PREMEDICATION
     Route: 048
     Dates: start: 20140908
  22. ATORVASTATIN [Concomitant]
     Active Substance: ATORVASTATIN
  23. HYDROMORPHONE [Concomitant]
     Active Substance: HYDROMORPHONE
     Route: 065
     Dates: end: 20150101
  24. KEFLEX [Concomitant]
     Active Substance: CEPHALEXIN
  25. HYDROMORPHONE [Concomitant]
     Active Substance: HYDROMORPHONE
     Dosage: HASN^T NEEDED IN LAST MONTH
     Route: 065
  26. VENTOLIN [Concomitant]
     Active Substance: ALBUTEROL SULFATE

REACTIONS (12)
  - Heart rate decreased [Not Recovered/Not Resolved]
  - Infusion related reaction [Unknown]
  - Necrosis [Not Recovered/Not Resolved]
  - Hepatic enzyme increased [Not Recovered/Not Resolved]
  - Cholelithiasis [Unknown]
  - Bronchitis [Unknown]
  - Liver disorder [Unknown]
  - Chest pain [Recovered/Resolved]
  - Rheumatoid vasculitis [Unknown]
  - Hypotension [Not Recovered/Not Resolved]
  - Dizziness [Recovered/Resolved]
  - Off label use [Unknown]

NARRATIVE: CASE EVENT DATE: 20150309
